FAERS Safety Report 6055062-5 (Version None)
Quarter: 2009Q1

REPORT INFORMATION
  Report Type: 
  Country: None (occurrence: None)
  Receive Date: 20090122
  Receipt Date: 20090107
  Transmission Date: 20090719
  Serious: Yes (Death, Other)
  Sender: FDA-Public Use
  Company Number: 55901

PATIENT
  Age: 44 Year
  Sex: Female

DRUGS (1)
  1. ETOMIDATE [Suspect]
     Indication: COMPLETED SUICIDE

REACTIONS (4)
  - ALCOHOL USE [None]
  - COMPLETED SUICIDE [None]
  - LOSS OF CONSCIOUSNESS [None]
  - OVERDOSE [None]
